FAERS Safety Report 9820870 (Version 1)
Quarter: 2014Q1

REPORT INFORMATION
  Report Type: Spontaneous
  Country: ES (occurrence: None)
  Receive Date: 20140114
  Receipt Date: 20140114
  Transmission Date: 20141002
  Serious: Yes (Hospitalization)
  Sender: FDA-Public Use
  Company Number: IMP_06933_2014

PATIENT
  Sex: Male

DRUGS (1)
  1. VALPROIC ACID (VALPROIC ACID) [Suspect]
     Indication: MATERNAL EXPOSURE DURING PREGNANCY
     Route: 064

REACTIONS (17)
  - Hypofibrinogenaemia [None]
  - Drug withdrawal syndrome neonatal [None]
  - Caesarean section [None]
  - Maternal drugs affecting foetus [None]
  - Cyanosis central [None]
  - Tachypnoea [None]
  - Petechiae [None]
  - Ecchymosis [None]
  - Cardiac murmur [None]
  - Blood glucose decreased [None]
  - Prothrombin time prolonged [None]
  - Prothrombin level decreased [None]
  - Kaolin cephalin clotting time shortened [None]
  - Hypertonia [None]
  - Irritability [None]
  - Vomiting [None]
  - Food intolerance [None]
